FAERS Safety Report 5001902-8 (Version None)
Quarter: 2006Q2

REPORT INFORMATION
  Report Type: 
  Country: None (occurrence: None)
  Receive Date: 20060515
  Receipt Date: 20050421
  Transmission Date: 20061013
  Serious: Yes (Hospitalization)
  Sender: FDA-Public Use
  Company Number: US-MERCK-0504USA04224

PATIENT
  Age: 56 Year
  Sex: Male
  Weight: 93 kg

DRUGS (11)
  1. VIOXX [Suspect]
     Indication: ARTHRITIS
     Route: 048
     Dates: start: 19990921, end: 20010701
  2. VIOXX [Suspect]
     Route: 048
     Dates: start: 19990920, end: 19990920
  3. VIOXX [Suspect]
     Indication: ROTATOR CUFF SYNDROME
     Route: 048
     Dates: start: 19990921, end: 20010701
  4. VIOXX [Suspect]
     Route: 048
     Dates: start: 19990920, end: 19990920
  5. MEDROL [Concomitant]
     Indication: RADICULOPATHY
     Route: 048
     Dates: start: 19990920
  6. MEDROL [Concomitant]
     Indication: MYALGIA
     Route: 048
     Dates: start: 19990920
  7. PLAVIX [Concomitant]
     Route: 048
     Dates: start: 20000401
  8. NITROGLYCERIN [Concomitant]
     Route: 060
     Dates: start: 20000412
  9. ASPIRIN [Concomitant]
     Route: 065
     Dates: start: 20000412
  10. BAYCOL [Concomitant]
     Route: 048
  11. NORVASC [Concomitant]
     Route: 065

REACTIONS (12)
  - CARDIOVASCULAR DISORDER [None]
  - CEREBROVASCULAR ACCIDENT [None]
  - DEPRESSION [None]
  - DYSPNOEA [None]
  - HERPES ZOSTER [None]
  - HYPERLIPIDAEMIA [None]
  - HYPERTENSION [None]
  - INTERMITTENT CLAUDICATION [None]
  - POLYCYTHAEMIA [None]
  - RECTAL TENESMUS [None]
  - VERTEBRAL ARTERY OCCLUSION [None]
  - VERTIGO [None]
